FAERS Safety Report 5547521-6 (Version None)
Quarter: 2007Q4

REPORT INFORMATION
  Report Type: 
  Country: None (occurrence: None)
  Receive Date: 20071126
  Receipt Date: 20070724
  Transmission Date: 20080405
  Serious: Yes (Hospitalization)
  Sender: FDA-Public Use
  Company Number: 2007BH006608

PATIENT
  Age: 46 Year
  Sex: Female
  Weight: 91.6266 kg

DRUGS (14)
  1. DIANEAL [Suspect]
     Indication: RENAL FAILURE CHRONIC
     Dosage: 6 L; IP
     Route: 033
     Dates: start: 20061201
  2. DIANEAL [Suspect]
     Indication: RENAL FAILURE CHRONIC
     Dosage: IP
     Route: 033
     Dates: start: 20061201
  3. LASIX [Concomitant]
  4. CALCITRIOL [Concomitant]
  5. FLEXERIL [Concomitant]
  6. REGLAN [Concomitant]
  7. EPOGEN [Concomitant]
  8. OXYCODONE [Concomitant]
  9. MIRAPEX [Concomitant]
  10. AMBIEN [Concomitant]
  11. M.V.I. [Concomitant]
  12. PHOSLO [Concomitant]
  13. PLAVIX [Concomitant]
  14. NEURONTIN [Concomitant]

REACTIONS (2)
  - PERITONITIS BACTERIAL [None]
  - PYREXIA [None]
